FAERS Safety Report 7571379-7 (Version None)
Quarter: 2011Q2

REPORT INFORMATION
  Report Type: 
  Country: None (occurrence: None)
  Receive Date: 20110624
  Receipt Date: 20110622
  Transmission Date: 20111010
  Serious: Yes (Other)
  Sender: FDA-Public Use
  Company Number: JP-PFIZER INC-2011138824

PATIENT
  Sex: Female

DRUGS (1)
  1. LYRICA [Suspect]
     Dosage: 75 MG, 1X/DAY
     Route: 048
     Dates: start: 20110621

REACTIONS (5)
  - NAUSEA [None]
  - GAIT DISTURBANCE [None]
  - HYPOAESTHESIA [None]
  - DYSSTASIA [None]
  - DIZZINESS [None]
